FAERS Safety Report 12476089 (Version 2)
Quarter: 2016Q2

REPORT INFORMATION
  Report Type: Spontaneous
  Country: US (occurrence: US)
  Receive Date: 20160617
  Receipt Date: 20160617
  Transmission Date: 20160815
  Serious: Yes (Hospitalization)
  Sender: FDA-Public Use
  Company Number: US-SA-2016SA112750

PATIENT
  Age: 88 Year
  Sex: Male

DRUGS (2)
  1. PLAVIX [Suspect]
     Active Substance: CLOPIDOGREL BISULFATE
     Route: 048
     Dates: start: 2002, end: 2005
  2. AMIODARONE [Concomitant]
     Active Substance: AMIODARONE

REACTIONS (4)
  - Renal failure [Unknown]
  - Haemorrhage [Recovered/Resolved]
  - Prostatic disorder [Unknown]
  - Contusion [Unknown]

NARRATIVE: CASE EVENT DATE: 2005
